FAERS Safety Report 5542560-3 (Version None)
Quarter: 2007Q4

REPORT INFORMATION
  Report Type: 
  Country: None (occurrence: None)
  Receive Date: 20071120
  Receipt Date: 20070712
  Transmission Date: 20080405
  Serious: Yes (Other)
  Sender: FDA-Public Use
  Company Number: 37584

PATIENT
  Sex: Female

DRUGS (1)
  1. METHOTREXATE [Suspect]
     Indication: ECTOPIC PREGNANCY
     Dosage: 75MG/IM
     Route: 030
     Dates: start: 20070529

REACTIONS (1)
  - PARAESTHESIA [None]
